FAERS Safety Report 6610657-2 (Version None)
Quarter: 2010Q1

REPORT INFORMATION
  Report Type: 
  Country: None (occurrence: None)
  Receive Date: 20100302
  Receipt Date: 20100224
  Transmission Date: 20100710
  Serious: Yes (Other)
  Sender: FDA-Public Use
  Company Number: A0846239A

PATIENT
  Age: 75 Year
  Sex: Female

DRUGS (7)
  1. REQUIP [Suspect]
     Indication: PARKINSON'S DISEASE
     Dosage: 3MG THREE TIMES PER DAY
     Route: 048
     Dates: start: 20031001
  2. XANAX [Concomitant]
  3. ARICEPT [Concomitant]
  4. SEROQUEL [Concomitant]
  5. VIT. D [Concomitant]
  6. SYNTHROID [Concomitant]
  7. LASIX [Concomitant]

REACTIONS (3)
  - DRUG INEFFECTIVE [None]
  - HALLUCINATION [None]
  - VISUAL ACUITY REDUCED [None]
